FAERS Safety Report 25369689 (Version 1)
Quarter: 2025Q2

REPORT INFORMATION
  Report Type: Spontaneous
  Country: CN (occurrence: CN)
  Receive Date: 20250528
  Receipt Date: 20250528
  Transmission Date: 20250716
  Serious: Yes (Hospitalization)
  Sender: ELI LILLY AND COMPANY
  Company Number: CN-Merck Healthcare KGaA-2025025400

PATIENT
  Age: 67 Year
  Sex: Male
  Weight: 60 kg

DRUGS (2)
  1. ERBITUX [Suspect]
     Active Substance: CETUXIMAB
     Indication: Hypopharyngeal cancer
     Route: 042
     Dates: start: 20250415, end: 20250415
  2. CARBOPLATIN [Suspect]
     Active Substance: CARBOPLATIN
     Indication: Hypopharyngeal cancer
     Dosage: 500 MG, DAILY
     Route: 041
     Dates: start: 20250416, end: 20250416

REACTIONS (1)
  - Myelosuppression [Recovering/Resolving]

NARRATIVE: CASE EVENT DATE: 20250508
